FAERS Safety Report 11512384 (Version 1)
Quarter: 2015Q3

REPORT INFORMATION
  Report Type: Spontaneous
  Country: US (occurrence: US)
  Receive Date: 20150916
  Receipt Date: 20150916
  Transmission Date: 20151125
  Serious: No
  Sender: FDA-Public Use
  Company Number: US-RB-067945-14

PATIENT

DRUGS (2)
  1. MUCINEX MAXIMUM STRENGTH [Suspect]
     Active Substance: GUAIFENESIN
     Indication: OROPHARYNGEAL PAIN
     Dosage: 20ML. ,QD
     Route: 048
     Dates: start: 20140806
  2. MUCINEX MAXIMUM STRENGTH [Suspect]
     Active Substance: GUAIFENESIN
     Dosage: 20ML. PRODUCT LAST USED ON: 07/AUG/2014. PATIENT TOOK 20 ML AT 1 AM ON 07/AUG/2014.,FREQUENCY UNK
     Route: 048
     Dates: start: 20140807

REACTIONS (5)
  - Rash pustular [Recovering/Resolving]
  - Blister [Not Recovered/Not Resolved]
  - Pruritus [Recovering/Resolving]
  - Rash [Recovered/Resolved]
  - Condition aggravated [Recovering/Resolving]

NARRATIVE: CASE EVENT DATE: 20140807
